FAERS Safety Report 13947176 (Version 1)
Quarter: 2017Q3

REPORT INFORMATION
  Report Type: Spontaneous
  Country: IN (occurrence: IN)
  Receive Date: 20170907
  Receipt Date: 20170907
  Transmission Date: 20171128
  Serious: Yes (Hospitalization, Other)
  Sender: FDA-Public Use
  Company Number: IN-ALEMBIC PHARMACUETICALS LIMITED-2017SCAL000721

PATIENT

DRUGS (4)
  1. ESCITALOPRAM [Suspect]
     Active Substance: ESCITALOPRAM OXALATE
     Indication: DEPRESSION
     Dosage: 10 MG, FOR 3 MONTHS
  2. QUETIAPINE FUMARATE. [Suspect]
     Active Substance: QUETIAPINE FUMARATE
     Indication: HALLUCINATION
     Dosage: 50 MG, FOR 1 MONTH
  3. QUETIAPINE FUMARATE. [Suspect]
     Active Substance: QUETIAPINE FUMARATE
     Indication: PSYCHOTIC DISORDER
  4. AMLODIPINE [Concomitant]
     Active Substance: AMLODIPINE BESYLATE
     Indication: HYPERTENSION
     Dosage: 5 MG, BID

REACTIONS (12)
  - Heart rate decreased [Recovering/Resolving]
  - Myxoedema coma [Recovering/Resolving]
  - Oedema peripheral [Recovering/Resolving]
  - Dysarthria [Recovering/Resolving]
  - Depressed level of consciousness [Recovering/Resolving]
  - Decreased activity [Recovering/Resolving]
  - Macroglossia [Recovering/Resolving]
  - Somnolence [Recovering/Resolving]
  - Hyporeflexia [Recovering/Resolving]
  - Periorbital oedema [Recovering/Resolving]
  - Hypothyroidism [Recovering/Resolving]
  - Dry skin [Recovering/Resolving]
